FAERS Safety Report 15883373 (Version 1)
Quarter: 2019Q1

REPORT INFORMATION
  Report Type: Spontaneous
  Country: DE (occurrence: DE)
  Receive Date: 20190129
  Receipt Date: 20190129
  Transmission Date: 20190417
  Serious: Yes (Hospitalization)
  Sender: FDA-Public Use
  Company Number: DE-ACCORD-103769

PATIENT
  Age: 78 Year
  Sex: Female

DRUGS (11)
  1. DONEPEZIL/DONEPEZIL HYDROCHLORIDE [Suspect]
     Active Substance: DONEPEZIL HYDROCHLORIDE
     Indication: PRODUCT USED FOR UNKNOWN INDICATION
     Dosage: 5 MG, 0-0-1-0
  2. VIGANTOLETTEN [Concomitant]
     Active Substance: CHOLECALCIFEROL
     Dosage: 1000 IE, 1-0-0-0
  3. CEFPODOXIME/CEFPODOXIME PROXETIL [Concomitant]
     Dosage: 200 MG, 1-0-0-1
  4. NEUPRO [Suspect]
     Active Substance: ROTIGOTINE
     Indication: PRODUCT USED FOR UNKNOWN INDICATION
     Dosage: 8 MG, 1-0-0-0, PLASTER TRANSDERMAL
     Route: 062
  5. MADOPAR T [Concomitant]
     Active Substance: BENSERAZIDE HYDROCHLORIDE\LEVODOPA
     Dosage: 100/25 MG, 1-1-1-1
  6. ISOPTO MAX [Concomitant]
     Dosage: 5X
     Route: 047
  7. LIQUIGEL [Concomitant]
     Dosage: 5X
     Route: 047
  8. MAGNESIUM HYDROXIDE. [Concomitant]
     Active Substance: MAGNESIUM HYDROXIDE
     Dosage: 1-0-1-0
  9. LACTULOSE. [Concomitant]
     Active Substance: LACTULOSE
     Dosage: 10 ML, 1-0-0-0
  10. L-THYROX [Concomitant]
     Active Substance: LEVOTHYROXINE SODIUM
     Dosage: 75 MICROG, 1-0-0-0
  11. PANTOPRAZOLE [Concomitant]
     Active Substance: PANTOPRAZOLE
     Dosage: 40 MG, 1-0-1-0

REACTIONS (1)
  - Loss of consciousness [Unknown]

NARRATIVE: CASE EVENT DATE: 20160305
